FAERS Safety Report 7162653-7 (Version None)
Quarter: 2010Q4

REPORT INFORMATION
  Report Type: 
  Country: None (occurrence: None)
  Receive Date: 20101215
  Receipt Date: 20091201
  Transmission Date: 20110411
  Serious: Yes (Hospitalization, Other)
  Sender: FDA-Public Use
  Company Number: TH-PFIZER INC-2009302944

PATIENT
  Age: 83 Year
  Sex: Female

DRUGS (14)
  1. LYRICA [Suspect]
     Indication: PAIN
     Dosage: 75 MG, SINGLE
     Route: 048
     Dates: start: 20091116, end: 20091116
  2. NEURONTIN [Suspect]
     Indication: NEURALGIA
     Dosage: 100 MG, 2X/DAY
     Route: 048
     Dates: start: 20091129, end: 20091130
  3. MUSCOL [Concomitant]
     Indication: PAIN
     Dosage: UNK
     Dates: start: 20091116
  4. VITAMIN B [Concomitant]
     Indication: PAIN
     Dosage: UNK
     Dates: start: 20091116
  5. PLAVIX [Concomitant]
     Dosage: UNK
  6. LIPITOR [Concomitant]
     Dosage: UNK
  7. PLENDIL [Concomitant]
     Dosage: UNK
  8. TENORMIN [Concomitant]
     Dosage: UNK
  9. ZYLORIC ^GLAXO WELLCOME^ [Concomitant]
     Dosage: UNK
  10. MIXTARD HUMAN 70/30 [Concomitant]
     Dosage: UNK
  11. EPREX [Concomitant]
     Dosage: UNK
  12. IMIPRAMINE [Concomitant]
  13. KETOSTERIL [Concomitant]
     Dosage: UNK
  14. LASIX [Concomitant]
     Dosage: UNK

REACTIONS (17)
  - CHEST X-RAY ABNORMAL [None]
  - DIZZINESS [None]
  - DRUG HYPERSENSITIVITY [None]
  - DYSPHAGIA [None]
  - DYSPNOEA [None]
  - EXTERNAL EAR PAIN [None]
  - GAIT DISTURBANCE [None]
  - MEMORY IMPAIRMENT [None]
  - MUSCLE SPASTICITY [None]
  - MUSCULAR WEAKNESS [None]
  - NAUSEA [None]
  - NERVOUSNESS [None]
  - TONGUE PARALYSIS [None]
  - TREMOR [None]
  - URINARY TRACT INFECTION [None]
  - VOMITING [None]
  - WHEEZING [None]
